FAERS Safety Report 6620217-5 (Version None)
Quarter: 2010Q1

REPORT INFORMATION
  Report Type: 
  Country: None (occurrence: None)
  Receive Date: 20100308
  Receipt Date: 20100308
  Transmission Date: 20100710
  Serious: Yes (Life-Threatening, Hospitalization, Disabling)
  Sender: FDA-Public Use
  Company Number: None

PATIENT
  Age: 71 Year
  Sex: Male
  Weight: 88.4514 kg

DRUGS (2)
  1. RITUXAN [Suspect]
     Indication: CHRONIC LYMPHOCYTIC LEUKAEMIA
     Dosage: 375MG/M2 IV X 3DAYS  Q 4 WKS
     Route: 042
     Dates: start: 20080407
  2. FLUDARA [Suspect]
     Indication: CHRONIC LYMPHOCYTIC LEUKAEMIA
     Dosage: 25MG/M2 IV X 3 DAYS Q 4WKS
     Route: 042
     Dates: start: 20080407

REACTIONS (3)
  - APPARENT DEATH [None]
  - DIPLEGIA [None]
  - MONOPLEGIA [None]
